FAERS Safety Report 10757440 (Version 1)
Quarter: 2015Q1

REPORT INFORMATION
  Report Type: Spontaneous
  Country: US (occurrence: None)
  Receive Date: 20150130
  Receipt Date: 20150130
  Transmission Date: 20150721
  Serious: Yes (Other)
  Sender: FDA-Public Use
  Company Number: 2015-US-000980

PATIENT
  Age: 33 Year
  Sex: Female
  Weight: 54.4 kg

DRUGS (2)
  1. VYANSE (LISDEXAMFETAMINE MESILATE) [Concomitant]
  2. XYREM [Suspect]
     Active Substance: SODIUM OXYBATE
     Indication: NARCOLEPSY
     Route: 048
     Dates: start: 201312, end: 2013

REACTIONS (4)
  - Osteoarthritis [None]
  - Autoimmune disorder [None]
  - Antinuclear antibody positive [None]
  - Fibromyalgia [None]

NARRATIVE: CASE EVENT DATE: 20150120
